FAERS Safety Report 18414738 (Version 1)
Quarter: 2020Q4

REPORT INFORMATION
  Report Type: Report from Study
  Country: IT (occurrence: IT)
  Receive Date: 20201022
  Receipt Date: 20201022
  Transmission Date: 20210114
  Serious: Yes (Other)
  Sender: FDA-Public Use
  Company Number: IT-MYLANLABS-2020M1088659

PATIENT

DRUGS (5)
  1. REGORAFENIB. [Interacting]
     Active Substance: REGORAFENIB
     Indication: HEPATOCELLULAR CARCINOMA
     Dosage: 4 DOSAGE FORM, QID TOTAL DAILY DOSE: 160MG
     Route: 048
  2. SIROLIMUS. [Interacting]
     Active Substance: SIROLIMUS
     Indication: IMMUNOSUPPRESSANT DRUG THERAPY
     Dosage: UNK
     Route: 065
  3. TACROLIMUS. [Interacting]
     Active Substance: TACROLIMUS
     Dosage: UNK, DOSAGES OF TACROLIMUS AND SIROLIMUS WERE TAPERED
     Route: 065
  4. SIROLIMUS. [Interacting]
     Active Substance: SIROLIMUS
     Dosage: UNK, DOSAGES OF TACROLIMUS AND SIROLIMUS WERE TAPERED
     Route: 065
  5. TACROLIMUS. [Suspect]
     Active Substance: TACROLIMUS
     Indication: IMMUNOSUPPRESSANT DRUG THERAPY
     Dosage: UNK
     Route: 065

REACTIONS (2)
  - Drug interaction [Recovered/Resolved]
  - Hepatotoxicity [Recovered/Resolved]
